FAERS Safety Report 5327323-6 (Version None)
Quarter: 2007Q2

REPORT INFORMATION
  Report Type: 
  Country: None (occurrence: None)
  Receive Date: 20070511
  Receipt Date: 20070402
  Transmission Date: 20071010
  Serious: Yes (Other)
  Sender: FDA-Public Use
  Company Number: ABILS-07-0306

PATIENT
  Age: 74 Year
  Sex: Female
  Weight: 63.7757 kg

DRUGS (6)
  1. ABRAXANE [Suspect]
     Indication: BREAST CANCER METASTATIC
     Dosage: (180 MG 3 WKS OUT OF 4), INTRAVENOUS
     Route: 042
     Dates: start: 20060821, end: 20070322
  2. NEXIUM [Concomitant]
  3. ACTOS [Concomitant]
  4. ZETIA [Concomitant]
  5. FOSAMAX [Concomitant]
  6. NEURONTIN [Concomitant]

REACTIONS (6)
  - BLOOD PRESSURE DECREASED [None]
  - DYSPNOEA [None]
  - FEELING ABNORMAL [None]
  - FLUSHING [None]
  - NAUSEA [None]
  - PRURITUS [None]
